FAERS Safety Report 9066469 (Version 1)
Quarter: 2013Q1

REPORT INFORMATION
  Report Type: Spontaneous
  Country: US (occurrence: US)
  Receive Date: 20130214
  Receipt Date: 20130214
  Transmission Date: 20140127
  Serious: No
  Sender: FDA-Public Use
  Company Number: US-PFIZER INC-2013055500

PATIENT
  Age: 38 Year
  Sex: Male
  Weight: 80 kg

DRUGS (10)
  1. EFFEXOR XR [Suspect]
     Indication: BIPOLAR DISORDER
     Dosage: 150 MG, 1X/DAY
     Dates: end: 20130205
  2. EFFEXOR XR [Suspect]
     Indication: DEPRESSION
  3. EFFEXOR XR [Suspect]
     Indication: DISTURBANCE IN ATTENTION
  4. EFFEXOR XR [Suspect]
     Indication: ANGER
  5. SEROQUEL [Suspect]
     Indication: SLEEP DISORDER
     Dosage: UNK
  6. SEROQUEL [Suspect]
     Dosage: 50 MG, 3X/DAY
  7. SEROQUEL [Suspect]
     Dosage: 150 MG (THREE TABLETS OF 50 MG AT ONCE DURING BED TIME)
  8. ADDERALL [Concomitant]
     Indication: ATTENTION DEFICIT/HYPERACTIVITY DISORDER
     Dosage: 90 MG (INCLUDING TWO 30 MG CAPSULES AND TWO 15 MG CAPSULES), 1X/DAY
  9. DEPAKOTE [Concomitant]
     Indication: AFFECTIVE DISORDER
     Dosage: 500 MG, 2X/DAY
  10. OMEPRAZOLE [Concomitant]
     Indication: GASTRIC DISORDER
     Dosage: 30 MG, 1X/DAY

REACTIONS (7)
  - Anxiety [Not Recovered/Not Resolved]
  - Disturbance in attention [Not Recovered/Not Resolved]
  - Feeling abnormal [Not Recovered/Not Resolved]
  - Headache [Not Recovered/Not Resolved]
  - Nasopharyngitis [Not Recovered/Not Resolved]
  - Blood glucose increased [Unknown]
  - Off label use [Unknown]
